FAERS Safety Report 9670063 (Version 1)
Quarter: 2013Q4

REPORT INFORMATION
  Report Type: Report from Study
  Country: RS (occurrence: RS)
  Receive Date: 20131105
  Receipt Date: 20131105
  Transmission Date: 20140711
  Serious: Yes (Life-Threatening, Hospitalization, Other)
  Sender: FDA-Public Use
  Company Number: RS-BAXTER-2013BAX042422

PATIENT
  Age: 50 Year
  Sex: Male

DRUGS (27)
  1. ENDOXAN 1G [Suspect]
     Indication: DIFFUSE LARGE B-CELL LYMPHOMA
     Route: 042
     Dates: start: 20130813
  2. DOXORUBICIN [Suspect]
     Indication: DIFFUSE LARGE B-CELL LYMPHOMA
     Route: 042
     Dates: start: 20130813
  3. VINCRISTINE [Suspect]
     Indication: DIFFUSE LARGE B-CELL LYMPHOMA
     Route: 040
     Dates: start: 20130813
  4. PREDNISONE [Suspect]
     Indication: DIFFUSE LARGE B-CELL LYMPHOMA
     Route: 048
     Dates: start: 20130813
  5. PREDNISONE [Suspect]
     Route: 048
     Dates: start: 20130817
  6. OBINUTUZUMAB [Suspect]
     Indication: DIFFUSE LARGE B-CELL LYMPHOMA
     Dosage: 4MG/ML
     Route: 042
  7. METHYLPREDNISOLONE SODIUM SUCCINATE [Concomitant]
     Indication: PRODUCT USED FOR UNKNOWN INDICATION
     Route: 065
     Dates: start: 20130726, end: 20130812
  8. IRON POLYMALTOSE [Concomitant]
     Indication: ANAEMIA
     Route: 065
     Dates: start: 20130725, end: 20130819
  9. CIPROFLOXACIN [Concomitant]
     Indication: PRODUCT USED FOR UNKNOWN INDICATION
     Route: 065
     Dates: start: 20130801, end: 20130819
  10. PANTOPRAZOLE SODIUM [Concomitant]
     Indication: PRODUCT USED FOR UNKNOWN INDICATION
     Route: 065
     Dates: start: 20130802
  11. RANITIDINE [Concomitant]
     Indication: PRODUCT USED FOR UNKNOWN INDICATION
     Route: 065
     Dates: start: 20130726, end: 20130802
  12. RANITIDINE [Concomitant]
     Route: 065
     Dates: start: 20130911, end: 20130918
  13. ALLOPURINOL [Concomitant]
     Indication: PRODUCT USED FOR UNKNOWN INDICATION
     Route: 065
     Dates: start: 20130723
  14. BLOOD, WHOLE [Concomitant]
     Indication: ANAEMIA
     Route: 065
     Dates: start: 20130726
  15. SODIUM CHLORIDE [Concomitant]
     Indication: PRODUCT USED FOR UNKNOWN INDICATION
     Route: 065
     Dates: start: 20130724
  16. FUROSEMIDE [Concomitant]
     Indication: HYPERKALAEMIA
     Route: 065
     Dates: start: 20130724, end: 20130724
  17. FUROSEMIDE [Concomitant]
     Indication: OEDEMA
     Route: 065
     Dates: start: 20130912, end: 20130913
  18. ALBUMIN HUMAN [Concomitant]
     Indication: OEDEMA PERIPHERAL
     Route: 065
     Dates: start: 20130816, end: 20130816
  19. ALBUMIN HUMAN [Concomitant]
     Indication: HYPOALBUMINAEMIA
     Route: 065
     Dates: start: 20130911, end: 20130916
  20. IMIPENEM CILASTATIN [Concomitant]
     Indication: PRODUCT USED FOR UNKNOWN INDICATION
     Route: 065
     Dates: start: 20130916, end: 20130920
  21. TIENAM [Concomitant]
     Indication: PRODUCT USED FOR UNKNOWN INDICATION
     Route: 065
     Dates: start: 20130916, end: 20130920
  22. GLUCOSE [Concomitant]
     Indication: PRODUCT USED FOR UNKNOWN INDICATION
     Route: 065
     Dates: start: 20130911, end: 20130919
  23. SPIRONOLACTONE [Concomitant]
     Indication: OEDEMA
     Route: 065
     Dates: start: 20130914, end: 20130919
  24. OLIGOVIT [Concomitant]
     Indication: HYPOVITAMINOSIS
     Route: 065
     Dates: start: 20130913, end: 20130919
  25. OLIGOVIT [Concomitant]
     Indication: MALNUTRITION
  26. BEVIPLEX [Concomitant]
     Indication: MALNUTRITION
     Route: 065
     Dates: start: 20130913, end: 20130919
  27. CALCIUM CARBONATE [Concomitant]
     Indication: HYPOCALCAEMIA
     Route: 065
     Dates: start: 20130914, end: 20130919

REACTIONS (3)
  - Gastrointestinal haemorrhage [Recovered/Resolved]
  - Subileus [Recovered/Resolved]
  - Pneumoperitoneum [Recovered/Resolved]
